FAERS Safety Report 16715472 (Version 1)
Quarter: 2019Q3

REPORT INFORMATION
  Report Type: Spontaneous
  Country: GB (occurrence: GB)
  Receive Date: 20190819
  Receipt Date: 20190819
  Transmission Date: 20191005
  Serious: Yes (Other)
  Sender: FDA-Public Use
  Company Number: GB-APOTEX-2019AP020679

PATIENT
  Sex: Male

DRUGS (3)
  1. ST. JOHN^S WORT [Suspect]
     Active Substance: ST. JOHN^S WORT
     Indication: DEPRESSION
     Dosage: UNK
     Route: 065
  2. DIAZEPAM. [Concomitant]
     Active Substance: DIAZEPAM
     Indication: PRODUCT USED FOR UNKNOWN INDICATION
     Dosage: UNK
     Route: 065
  3. SEROXAT [Suspect]
     Active Substance: PAROXETINE HYDROCHLORIDE
     Indication: DEPRESSION
     Dosage: UNK
     Route: 065

REACTIONS (14)
  - Drug dependence [Unknown]
  - Increased appetite [Unknown]
  - Anxiety [Unknown]
  - Weight increased [Unknown]
  - Suicidal ideation [Unknown]
  - Panic attack [Unknown]
  - Withdrawal syndrome [Unknown]
  - Hypoaesthesia [Unknown]
  - Pudendal canal syndrome [Unknown]
  - Libido decreased [Unknown]
  - Fatigue [Unknown]
  - Intrusive thoughts [Unknown]
  - Asthenia [Unknown]
  - Decreased interest [Unknown]
